FAERS Safety Report 18087122 (Version 1)
Quarter: 2020Q3

REPORT INFORMATION
  Report Type: Spontaneous
  Country: FR (occurrence: FR)
  Receive Date: 20200729
  Receipt Date: 20200729
  Transmission Date: 20201103
  Serious: Yes (Other)
  Sender: FDA-Public Use
  Company Number: FR-AMICUS THERAPEUTICS, INC.-AMI_977

PATIENT
  Age: 72 Year
  Sex: Female

DRUGS (1)
  1. GALAFOLD [Suspect]
     Active Substance: MIGALASTAT HYDROCHLORIDE
     Indication: FABRY^S DISEASE
     Dosage: 123 MILLIGRAM
     Route: 048
     Dates: start: 201810

REACTIONS (2)
  - Adverse event [Unknown]
  - Renal impairment [Unknown]
